FAERS Safety Report 10629961 (Version 1)
Quarter: 2014Q4

REPORT INFORMATION
  Report Type: Spontaneous
  Country: US (occurrence: None)
  Receive Date: 20141203
  Receipt Date: 20141203
  Transmission Date: 20150529
  Serious: No
  Sender: FDA-Public Use
  Company Number: None

PATIENT
  Age: 91 Year
  Sex: Female

DRUGS (1)
  1. CLONAZEPAM. [Suspect]
     Active Substance: CLONAZEPAM
     Dosage: 1 TABLET AS NEEDED TAKEN BY MOUTH
     Route: 048

REACTIONS (3)
  - Vision blurred [None]
  - Dizziness [None]
  - Pain in jaw [None]

NARRATIVE: CASE EVENT DATE: 20141119
